FAERS Safety Report 14017533 (Version 1)
Quarter: 2017Q3

REPORT INFORMATION
  Report Type: Other
  Country: US (occurrence: US)
  Receive Date: 20170927
  Receipt Date: 20170927
  Transmission Date: 20171128
  Serious: Yes (Death)
  Sender: FDA-Public Use
  Company Number: US-KNIGHT THERAPEUTICS (USA) INC.-2027962

PATIENT
  Age: 35 Year
  Sex: Female

DRUGS (8)
  1. FLUCONAZOLE. [Suspect]
     Active Substance: FLUCONAZOLE
  2. MYCOPHENOLATE MOFETIL. [Concomitant]
     Active Substance: MYCOPHENOLATE MOFETIL
  3. SULFASALAZINE. [Suspect]
     Active Substance: SULFASALAZINE
  4. IMPAVIDO [Suspect]
     Active Substance: MILTEFOSINE
     Indication: OFF LABEL USE
     Route: 048
     Dates: start: 201509
  5. PREDNISOLONE. [Concomitant]
     Active Substance: PREDNISOLONE
  6. FLUCYTOSINE. [Suspect]
     Active Substance: FLUCYTOSINE
  7. PENTAMIDINE [Suspect]
     Active Substance: PENTAMIDINE
  8. TACROLIMUS. [Concomitant]
     Active Substance: TACROLIMUS

REACTIONS (9)
  - Death [Fatal]
  - Off label use [None]
  - Nausea [Unknown]
  - Vomiting [Unknown]
  - Hepatic function abnormal [Unknown]
  - Drug ineffective [None]
  - Electrolyte imbalance [Unknown]
  - Renal impairment [Unknown]
  - Intestinal obstruction [Fatal]
